FAERS Safety Report 4706132-2 (Version None)
Quarter: 2005Q2

REPORT INFORMATION
  Report Type: 
  Country: None (occurrence: None)
  Receive Date: 20050627
  Receipt Date: 20040921
  Transmission Date: 20051028
  Serious: Yes (Hospitalization, Other)
  Sender: FDA-Public Use
  Company Number: US-JNJFOC-20040706248

PATIENT
  Age: 60 Year
  Sex: Female

DRUGS (13)
  1. DURAGESIC-100 [Suspect]
     Indication: PAIN
     Dosage: SEE IMAGE
     Route: 062
     Dates: end: 20040401
  2. DURAGESIC-100 [Suspect]
     Indication: PAIN
     Dosage: SEE IMAGE
     Route: 062
     Dates: start: 20040401, end: 20040721
  3. DURAGESIC-100 [Suspect]
     Indication: PAIN
     Dosage: SEE IMAGE
     Route: 062
     Dates: start: 20020101
  4. . [Concomitant]
  5. . [Concomitant]
  6. . [Concomitant]
  7. . [Concomitant]
  8. LEVAQUIN [Suspect]
     Dosage: INTRAVENOUS
     Route: 042
     Dates: start: 20040401, end: 20040401
  9. PERCOCET [Suspect]
     Indication: ANXIETY
     Dosage: 5 MG, 4 IN 24 HOUR, ORAL
     Route: 048
     Dates: end: 20040604
  10. XANAX [Suspect]
     Indication: ANXIETY
     Dosage: 0.5 MG, 3-4 IN 24 HOURS
     Dates: end: 20040630
  11. RISPERDAL [Concomitant]
  12. SEROQUEL [Concomitant]
  13. IMITREX [Concomitant]

REACTIONS (15)
  - CHEST PAIN [None]
  - DRUG ABUSER [None]
  - DRUG WITHDRAWAL SYNDROME [None]
  - DYSKINESIA [None]
  - HEADACHE [None]
  - HYPERHIDROSIS [None]
  - INFUSION SITE REACTION [None]
  - INSOMNIA [None]
  - MUSCLE SPASMS [None]
  - PAIN [None]
  - PANIC ATTACK [None]
  - PARAESTHESIA [None]
  - RESTLESSNESS [None]
  - TREMOR [None]
  - UPPER RESPIRATORY TRACT INFECTION [None]
